FAERS Safety Report 9285927 (Version 1)
Quarter: 2013Q2

REPORT INFORMATION
  Report Type: Spontaneous
  Country: US (occurrence: None)
  Receive Date: 20130510
  Receipt Date: 20130510
  Transmission Date: 20140414
  Serious: Yes (Other)
  Sender: FDA-Public Use
  Company Number: None

PATIENT
  Age: 82 Year
  Sex: Female
  Weight: 47.63 kg

DRUGS (2)
  1. NEVANAC [Suspect]
     Indication: PROCEDURAL PAIN
     Dosage: 1 DROP
     Route: 047
     Dates: start: 20130304, end: 20130323
  2. NEVANAC [Suspect]
     Indication: POST PROCEDURAL SWELLING
     Dosage: 1 DROP
     Route: 047
     Dates: start: 20130304, end: 20130323

REACTIONS (6)
  - Rash pruritic [None]
  - Insomnia [None]
  - Rash [None]
  - Rash [None]
  - Rash [None]
  - Genital rash [None]
